FAERS Safety Report 5891872-2 (Version None)
Quarter: 2008Q3

REPORT INFORMATION
  Report Type: 
  Country: None (occurrence: None)
  Receive Date: 20080918
  Receipt Date: 20080918
  Transmission Date: 20090109
  Serious: Yes (Other)
  Sender: FDA-Public Use
  Company Number: None

PATIENT
  Age: 32 Year
  Sex: Male
  Weight: 108.8633 kg

DRUGS (3)
  1. LEVAQUIN [Suspect]
     Indication: EAR INFECTION
     Dosage: 750MG 1X DAY PO
     Route: 048
     Dates: start: 20080910, end: 20080910
  2. LEVAQUIN [Suspect]
     Indication: PYREXIA
     Dosage: 750MG 1X DAY PO
     Route: 048
     Dates: start: 20080910, end: 20080910
  3. OFLOXACIN OTIC SOLUTION [Concomitant]

REACTIONS (2)
  - ARTHRALGIA [None]
  - JOINT STIFFNESS [None]
